FAERS Safety Report 12760215 (Version 5)
Quarter: 2021Q3

REPORT INFORMATION
  Report Type: Spontaneous
  Country: FR (occurrence: FR)
  Receive Date: 20160919
  Receipt Date: 20210914
  Transmission Date: 20211014
  Serious: Yes (Congenital Anomaly, Other)
  Sender: FDA-Public Use
  Company Number: FR-ABBVIE-16P-056-1731286-00

PATIENT
  Sex: Male

DRUGS (2)
  1. DEPAKINE CHRONO [Suspect]
     Active Substance: VALPROATE SODIUM
     Indication: MATERNAL EXPOSURE TIMING UNSPECIFIED
     Route: 064
  2. SPECIAFOLDINE [Concomitant]
     Active Substance: FOLIC ACID
     Indication: MATERNAL EXPOSURE TIMING UNSPECIFIED
     Route: 064

REACTIONS (41)
  - Maxillonasal dysplasia [Recovered/Resolved]
  - Talipes [Unknown]
  - Speech disorder developmental [Unknown]
  - Phobic avoidance [Unknown]
  - Social fear [Unknown]
  - Motor dysfunction [Unknown]
  - Dentofacial anomaly [Unknown]
  - Prognathism [Unknown]
  - Psychomotor retardation [Unknown]
  - Foetal anticonvulsant syndrome [Unknown]
  - Memory impairment [Unknown]
  - Enuresis [Recovered/Resolved]
  - Anxiety [Unknown]
  - Language disorder [Unknown]
  - Foetal exposure during pregnancy [Unknown]
  - Fine motor skill dysfunction [Unknown]
  - Animal phobia [Unknown]
  - Otitis media [Unknown]
  - Tic [Unknown]
  - Disturbance in attention [Unknown]
  - Autism spectrum disorder [Unknown]
  - Tongue disorder [Unknown]
  - Personality disorder [Unknown]
  - Hypotonia [Unknown]
  - Ligament laxity [Unknown]
  - Personal relationship issue [Unknown]
  - Hydrophobia [Unknown]
  - Myopia [Unknown]
  - Shoulder dystocia [Unknown]
  - Clinodactyly [Unknown]
  - Noctiphobia [Unknown]
  - Speech disorder [Not Recovered/Not Resolved]
  - Congenital flat feet [Unknown]
  - Hypertonia [Unknown]
  - Laryngitis [Unknown]
  - Social problem [Unknown]
  - Bronchiolitis [Unknown]
  - Affective disorder [Unknown]
  - Psychomotor skills impaired [Unknown]
  - Echolalia [Unknown]
  - Fear of closed spaces [Unknown]

NARRATIVE: CASE EVENT DATE: 19970207
